FAERS Safety Report 4643802-9 (Version None)
Quarter: 2005Q2

REPORT INFORMATION
  Report Type: 
  Country: None (occurrence: None)
  Receive Date: 20050331
  Receipt Date: 20050121
  Transmission Date: 20051028
  Serious: No
  Sender: FDA-Public Use
  Company Number: 05P-163-0291669-00

PATIENT
  Age: 47 Year
  Sex: Female

DRUGS (11)
  1. HUMIRA [Suspect]
     Indication: RHEUMATOID ARTHRITIS
     Dosage: 40 MG, 1 IN 2 WK, SUBCUTANEOUS
     Route: 058
     Dates: start: 20040101
  2. AMITRIPTYLINE HCL TAB [Concomitant]
  3. HYDROXYCHLOROQUINE SULFATE [Concomitant]
  4. DOCUSATE SODIUM [Concomitant]
  5. CALCIUM GLUCONATE [Concomitant]
  6. MULTI-VITAMINS [Concomitant]
  7. ASPIRIN [Concomitant]
  8. METHOTREXATE [Concomitant]
  9. IBUPROFEN [Concomitant]
  10. PREDNISONE [Concomitant]
  11. ESOMEPRAZOLE [Concomitant]

REACTIONS (1)
  - NASOPHARYNGITIS [None]
